FAERS Safety Report 6210676-4 (Version None)
Quarter: 2009Q2

REPORT INFORMATION
  Report Type: 
  Country: None (occurrence: None)
  Receive Date: 20090528
  Receipt Date: 20090528
  Transmission Date: 20091009
  Serious: Yes (Other)
  Sender: FDA-Public Use
  Company Number: None

PATIENT
  Age: 54 Year
  Sex: Female
  Weight: 58.9676 kg

DRUGS (3)
  1. EFFEXOR [Suspect]
     Indication: BEREAVEMENT REACTION
     Dosage: 1 PILL EVERY OTHER DAY
  2. EFFEXOR [Suspect]
     Indication: DEPRESSION
     Dosage: 1 PILL EVERY OTHER DAY
  3. EFFEXOR [Suspect]
     Indication: HOT FLUSH
     Dosage: 1 PILL EVERY OTHER DAY

REACTIONS (7)
  - DRUG WITHDRAWAL SYNDROME [None]
  - HEADACHE [None]
  - NAUSEA [None]
  - PARAESTHESIA [None]
  - SUICIDAL IDEATION [None]
  - VERTIGO [None]
  - VISUAL IMPAIRMENT [None]
